FAERS Safety Report 6735651-2 (Version None)
Quarter: 2010Q2

REPORT INFORMATION
  Report Type: 
  Country: None (occurrence: None)
  Receive Date: 20100521
  Receipt Date: 20100518
  Transmission Date: 20101027
  Serious: Yes (Life-Threatening, Hospitalization, Other)
  Sender: FDA-Public Use
  Company Number: PHHO2009IN13381

PATIENT
  Sex: Male
  Weight: 71 kg

DRUGS (7)
  1. ALISKIREN ALI+TAB+CF [Suspect]
     Indication: CARDIAC FAILURE ACUTE
     Dosage: BLINDED
     Route: 048
     Dates: start: 20090924, end: 20091029
  2. ALISKIREN ALI+TAB+CF [Suspect]
     Dosage: BLINDED
     Route: 048
     Dates: start: 20091119, end: 20100321
  3. ALDACTONE [Concomitant]
  4. CARVEDILOL [Concomitant]
     Indication: CARDIAC FAILURE ACUTE
  5. LANOXIN [Concomitant]
     Indication: CARDIAC FAILURE ACUTE
  6. ACTRAPID HUMAN [Concomitant]
  7. RANTAC [Concomitant]

REACTIONS (24)
  - ABDOMINAL DISTENSION [None]
  - ACUTE PRERENAL FAILURE [None]
  - BLOOD CREATININE INCREASED [None]
  - BLOOD UREA INCREASED [None]
  - CARDIAC FAILURE ACUTE [None]
  - CARDIAC MURMUR [None]
  - DISEASE PROGRESSION [None]
  - DYSPNOEA [None]
  - FATIGUE [None]
  - HYPERKALAEMIA [None]
  - HYPONATRAEMIA [None]
  - HYPOTENSION [None]
  - INFECTION [None]
  - LOCALISED INTRAABDOMINAL FLUID COLLECTION [None]
  - OEDEMA PERIPHERAL [None]
  - ORTHOPNOEA [None]
  - PERIPHERAL COLDNESS [None]
  - RALES [None]
  - SOMNOLENCE [None]
  - SWELLING FACE [None]
  - TACHYCARDIA [None]
  - WEIGHT DECREASED [None]
  - WEIGHT INCREASED [None]
  - WHITE BLOOD CELL COUNT INCREASED [None]
